FAERS Safety Report 22386964 (Version 1)
Quarter: 2023Q2

REPORT INFORMATION
  Report Type: Other
  Country: None (occurrence: US)
  Receive Date: 20230531
  Receipt Date: 20230531
  Transmission Date: 20230721
  Serious: Yes (Death)
  Sender: FDA-Public Use
  Company Number: US-Knight Therapeutics (USA) Inc.-2142155

PATIENT
  Age: 64 Year
  Sex: Male

DRUGS (5)
  1. IMPAVIDO [Suspect]
     Active Substance: MILTEFOSINE
     Indication: Encephalitis protozoal
  2. POSACONAZOLE [Concomitant]
     Active Substance: POSACONAZOLE
     Route: 065
  3. SULFAMETHOXAZOLE AND TRIMETHOPRIM [Concomitant]
     Active Substance: SULFAMETHOXAZOLE\TRIMETHOPRIM
  4. AMPOTHERICIN B [Concomitant]
  5. VORICONAZOLE [Concomitant]
     Active Substance: VORICONAZOLE

REACTIONS (2)
  - Drug ineffective for unapproved indication [Fatal]
  - Off label use [None]
